FAERS Safety Report 24995500 (Version 1)
Quarter: 2025Q1

REPORT INFORMATION
  Report Type: Spontaneous
  Country: US (occurrence: None)
  Receive Date: 20250221
  Receipt Date: 20250221
  Transmission Date: 20250409
  Serious: No
  Sender: FDA-CTU
  Company Number: None

PATIENT

DRUGS (1)
  1. ZEPOSIA [Suspect]
     Active Substance: OZANIMOD HYDROCHLORIDE

REACTIONS (24)
  - Product dose omission in error [None]
  - Headache [None]
  - White blood cell count decreased [None]
  - Back pain [None]
  - Blood pressure increased [None]
  - Irritability [None]
  - Pruritus [None]
  - Type 2 diabetes mellitus [None]
  - Loss of personal independence in daily activities [None]
  - Walking aid user [None]
  - Multiple sclerosis [None]
  - Tremor [None]
  - Visual impairment [None]
  - Speech disorder [None]
  - Pain in extremity [None]
  - Hypoaesthesia [None]
  - Memory impairment [None]
  - Aphasia [None]
  - Disturbance in attention [None]
  - Balance disorder [None]
  - Asthenopia [None]
  - Gait disturbance [None]
  - Musculoskeletal disorder [None]
  - Inappropriate schedule of product administration [None]
